FAERS Safety Report 9064395 (Version 3)
Quarter: 2013Q2

REPORT INFORMATION
  Report Type: Spontaneous
  Country: JP (occurrence: JP)
  Receive Date: 20130213
  Receipt Date: 20130402
  Transmission Date: 20140414
  Serious: Yes (Other)
  Sender: FDA-Public Use
  Company Number: JP-PFIZER INC-2013057900

PATIENT
  Age: 78 Year
  Sex: Male

DRUGS (9)
  1. LIPITOR [Suspect]
     Indication: HYPERCHOLESTEROLAEMIA
     Dosage: 10 MG, 1X/DAY
     Route: 048
     Dates: end: 20130215
  2. ALESION [Suspect]
     Dosage: 20 MG, 1X/DAY
     Route: 048
     Dates: end: 20130215
  3. ZYLORIC [Suspect]
     Dosage: 100 MG, 2X/DAY
     Route: 048
  4. ITOROL [Concomitant]
     Dosage: 20 MG, 2X/DAY
  5. GANATON [Concomitant]
     Dosage: 50 MG, 2X/DAY
  6. ARTIST [Concomitant]
     Dosage: 20 MG, 1X/DAY
  7. AVAPRO [Concomitant]
     Dosage: 50 MG, 1X/DAY
  8. BAYASPIRIN [Concomitant]
     Dosage: 100 MG, 1X/DAY
  9. ALINAMIN F [Concomitant]
     Dosage: 25 MG, 3X/DAY

REACTIONS (1)
  - Ageusia [Not Recovered/Not Resolved]
